FAERS Safety Report 6762845-2 (Version None)
Quarter: 2010Q2

REPORT INFORMATION
  Report Type: 
  Country: None (occurrence: None)
  Receive Date: 20100608
  Receipt Date: 20100608
  Transmission Date: 20101027
  Serious: Yes (Hospitalization)
  Sender: FDA-Public Use
  Company Number: None

PATIENT
  Age: 53 Year
  Sex: Male
  Weight: 72.57 kg

DRUGS (1)
  1. LORAZEPAM [Suspect]
     Indication: DRUG DETOXIFICATION
     Dosage: 1 MG ONCE PO
     Route: 048
     Dates: start: 20100513, end: 20100513

REACTIONS (1)
  - SEDATION [None]
